FAERS Safety Report 5026752-8 (Version None)
Quarter: 2006Q2

REPORT INFORMATION
  Report Type: 
  Country: None (occurrence: None)
  Receive Date: 20060615
  Receipt Date: 20060613
  Transmission Date: 20061013
  Serious: Yes (Life-Threatening, Hospitalization, Other)
  Sender: FDA-Public Use
  Company Number: US-MERCK-0606USA02232

PATIENT
  Age: 61 Year
  Sex: Male
  Weight: 100 kg

DRUGS (7)
  1. COZAAR [Concomitant]
     Indication: HYPERTENSION
     Route: 048
     Dates: start: 20041001
  2. VYTORIN [Suspect]
     Indication: LIPIDS INCREASED
     Route: 048
     Dates: start: 20051001, end: 20060301
  3. VYTORIN [Suspect]
     Route: 048
     Dates: start: 20060301
  4. ALLOPURINOL MSD [Concomitant]
     Indication: GOUT
     Route: 048
     Dates: start: 20051001
  5. SINGULAIR [Concomitant]
     Indication: HYPERSENSITIVITY
     Route: 048
     Dates: start: 20041001
  6. ASPIRIN [Concomitant]
     Indication: ANTICOAGULANT THERAPY
     Route: 048
     Dates: start: 20051001
  7. PLAVIX [Concomitant]
     Indication: ANTICOAGULANT THERAPY
     Route: 048
     Dates: start: 20060301

REACTIONS (1)
  - ACUTE MYOCARDIAL INFARCTION [None]
